FAERS Safety Report 13567107 (Version 1)
Quarter: 2017Q2

REPORT INFORMATION
  Report Type: Spontaneous
  Country: US (occurrence: US)
  Receive Date: 20170522
  Receipt Date: 20170522
  Transmission Date: 20170830
  Serious: No
  Sender: FDA-Public Use
  Company Number: US-DRREDDYS-USA/USA/16/0084603

PATIENT
  Sex: Female
  Weight: 45.35 kg

DRUGS (3)
  1. ZENATANE [Suspect]
     Active Substance: ISOTRETINOIN
     Route: 048
     Dates: start: 20161012
  2. ZENATANE [Suspect]
     Active Substance: ISOTRETINOIN
     Indication: ACNE
     Route: 048
     Dates: start: 20160615
  3. CLINDAMYCIN. [Concomitant]
     Active Substance: CLINDAMYCIN
     Indication: PRODUCT USED FOR UNKNOWN INDICATION
     Dosage: LOTION
     Route: 065

REACTIONS (1)
  - Abdominal pain upper [Recovered/Resolved]
